FAERS Safety Report 5724314-8 (Version None)
Quarter: 2008Q2

REPORT INFORMATION
  Report Type: 
  Country: None (occurrence: None)
  Receive Date: 20080430
  Receipt Date: 20080418
  Transmission Date: 20081010
  Serious: Yes (Other)
  Sender: FDA-Public Use
  Company Number: US-PFIZER INC-2008034971

PATIENT
  Sex: Male
  Weight: 89.4 kg

DRUGS (2)
  1. CHANTIX [Suspect]
     Indication: SMOKING CESSATION THERAPY
     Dates: start: 20071201, end: 20080101
  2. LUNESTA [Concomitant]

REACTIONS (2)
  - DEPRESSION [None]
  - INTENTIONAL SELF-INJURY [None]
